FAERS Safety Report 15064889 (Version 2)
Quarter: 2019Q1

REPORT INFORMATION
  Report Type: Report from Study
  Country: PT (occurrence: PT)
  Receive Date: 20180626
  Receipt Date: 20190219
  Transmission Date: 20190417
  Serious: Yes (Death)
  Sender: FDA-Public Use
  Company Number: PT-ROCHE-2056473

PATIENT
  Age: 65 Year
  Sex: Female
  Weight: 55 kg

DRUGS (18)
  1. TRASTUZUMAB. [Suspect]
     Active Substance: TRASTUZUMAB
     Indication: HER-2 POSITIVE BREAST CANCER
     Route: 058
     Dates: start: 20171116
  2. FOLIC ACID. [Concomitant]
     Active Substance: FOLIC ACID
     Route: 065
     Dates: start: 20171015, end: 20171126
  3. IPRATROPIUM BROMIDE. [Concomitant]
     Active Substance: IPRATROPIUM BROMIDE
     Route: 065
     Dates: end: 20171126
  4. METOCLOPRAMIDE. [Concomitant]
     Active Substance: METOCLOPRAMIDE
     Route: 065
     Dates: end: 20171126
  5. METAMIZOL [Concomitant]
     Active Substance: METAMIZOLE SODIUM
     Route: 065
     Dates: end: 20171126
  6. CODEINE [Concomitant]
     Active Substance: CODEINE
     Route: 065
     Dates: start: 20171015, end: 20171126
  7. PHENYLTOLOXAMINE [Concomitant]
     Active Substance: PHENYLTOLOXAMINE
     Route: 065
     Dates: start: 20171015, end: 20171126
  8. ESOMEPRAZOL [Concomitant]
     Active Substance: ESOMEPRAZOLE
     Route: 065
     Dates: start: 20120615, end: 20171126
  9. PARACETAMOL [Concomitant]
     Active Substance: ACETAMINOPHEN
     Route: 065
     Dates: start: 20171115, end: 20171126
  10. BETAHISTINE [Concomitant]
     Active Substance: BETAHISTINE
     Route: 065
     Dates: start: 20171015, end: 20171126
  11. LORAZEPAM. [Concomitant]
     Active Substance: LORAZEPAM
     Route: 065
     Dates: start: 20171106, end: 20171126
  12. PERTUZUMAB. [Suspect]
     Active Substance: PERTUZUMAB
     Indication: HER-2 POSITIVE BREAST CANCER
     Route: 042
     Dates: start: 20171116
  13. HYDROCHLOROTHIAZIDE. [Concomitant]
     Active Substance: HYDROCHLOROTHIAZIDE
     Route: 065
     Dates: start: 20120615, end: 20171126
  14. NYSTATINE [Concomitant]
     Route: 065
     Dates: end: 20171126
  15. CANDESARTAN. [Concomitant]
     Active Substance: CANDESARTAN
     Route: 065
     Dates: start: 20120615, end: 20171126
  16. PACLITAXEL. [Suspect]
     Active Substance: PACLITAXEL
     Indication: HER-2 POSITIVE BREAST CANCER
     Route: 042
     Dates: start: 20171116
  17. LETROZOLE. [Suspect]
     Active Substance: LETROZOLE
     Indication: HER-2 POSITIVE BREAST CANCER
     Route: 048
     Dates: start: 20171023, end: 20171106
  18. SALBUTAMOL [Concomitant]
     Active Substance: ALBUTEROL
     Route: 065
     Dates: end: 20171126

REACTIONS (1)
  - Death [Fatal]

NARRATIVE: CASE EVENT DATE: 20171126
